FAERS Safety Report 9757245 (Version 2)
Quarter: 2013Q4

REPORT INFORMATION
  Report Type: Report from Study
  Country: TR (occurrence: TR)
  Receive Date: 20131213
  Receipt Date: 20131213
  Transmission Date: 20140711
  Serious: Yes (Hospitalization)
  Sender: FDA-Public Use
  Company Number: TR-ABBVIE-13P-161-1087371-00

PATIENT
  Age: 41 Year
  Sex: Male
  Weight: 96 kg

DRUGS (3)
  1. HUMIRA [Suspect]
     Indication: RHEUMATOID ARTHRITIS
     Route: 058
     Dates: start: 20111220, end: 20130806
  2. ENDOL [Concomitant]
     Indication: PRODUCT USED FOR UNKNOWN INDICATION
  3. DELTACORTIL (PREDISOLON) [Concomitant]
     Indication: PRODUCT USED FOR UNKNOWN INDICATION

REACTIONS (5)
  - Hypoaesthesia [Recovered/Resolved]
  - Myocardial infarction [Recovered/Resolved]
  - Chest pain [Recovered/Resolved]
  - Hyperhidrosis [Recovered/Resolved]
  - Muscular weakness [Recovered/Resolved]
